FAERS Safety Report 7963383-1 (Version None)
Quarter: 2011Q4

REPORT INFORMATION
  Report Type: 
  Country: None (occurrence: None)
  Receive Date: 20111208
  Receipt Date: 20111202
  Transmission Date: 20120403
  Serious: No
  Sender: FDA-Public Use
  Company Number: US-B.I. PHARMACEUTICALS,INC./RIDGEFIELD-2011-BP-27294BP

PATIENT
  Age: 88 Year
  Sex: Male

DRUGS (6)
  1. PRADAXA [Suspect]
     Indication: ATRIAL FIBRILLATION
     Dosage: 150 MG
     Route: 048
     Dates: start: 20110501
  2. IRON [Concomitant]
     Dates: start: 20100101
  3. LEVOTHYROXINE SODIUM [Concomitant]
  4. FUROSEMIDE [Concomitant]
  5. TAMSULOSIN HCL [Concomitant]
     Dates: start: 20100101
  6. SIMVASTATIN [Concomitant]
     Dates: start: 20100101

REACTIONS (1)
  - LIVER FUNCTION TEST ABNORMAL [None]
